FAERS Safety Report 10105962 (Version 2)
Quarter: 2014Q3

REPORT INFORMATION
  Report Type: Other
  Country: US (occurrence: US)
  Receive Date: 20140424
  Receipt Date: 20140722
  Transmission Date: 20150326
  Serious: Yes (Hospitalization, Other)
  Sender: FDA-Public Use
  Company Number: US-GSKPPD-2014GSK002028

PATIENT
  Sex: Female

DRUGS (6)
  1. MELDOPA [Concomitant]
  2. SIMVASTATIN. [Concomitant]
     Active Substance: SIMVASTATIN
  3. ASPIRIN. [Concomitant]
     Active Substance: ASPIRIN
  4. AVAPRO [Concomitant]
     Active Substance: IRBESARTAN
  5. PLENDIL [Concomitant]
     Active Substance: FELODIPINE
  6. AVANDIA [Suspect]
     Active Substance: ROSIGLITAZONE MALEATE
     Indication: DIABETES MELLITUS
     Route: 048
     Dates: start: 2002, end: 2010

REACTIONS (1)
  - Cerebrovascular accident [Recovered/Resolved]

NARRATIVE: CASE EVENT DATE: 20070430
